FAERS Safety Report 19278039 (Version 3)
Quarter: 2021Q2

REPORT INFORMATION
  Report Type: Spontaneous
  Country: US (occurrence: US)
  Receive Date: 20210520
  Receipt Date: 20210622
  Transmission Date: 20210717
  Serious: No
  Sender: FDA-Public Use
  Company Number: US-SA-2021SA163631

PATIENT
  Age: 70 Year
  Sex: Male

DRUGS (1)
  1. SOLIQUA 100/33 [Suspect]
     Active Substance: INSULIN GLARGINE\LIXISENATIDE
     Indication: TYPE 2 DIABETES MELLITUS
     Dosage: 44 IU, QD
     Route: 065
     Dates: start: 202101

REACTIONS (5)
  - Injection site pain [Unknown]
  - Blood glucose increased [Unknown]
  - Incorrect dose administered by device [Unknown]
  - Device issue [Unknown]
  - Injection site haemorrhage [Unknown]

NARRATIVE: CASE EVENT DATE: 2021
